FAERS Safety Report 25714606 (Version 3)
Quarter: 2025Q4

REPORT INFORMATION
  Report Type: Spontaneous
  Country: EG (occurrence: EG)
  Receive Date: 20250822
  Receipt Date: 20251028
  Transmission Date: 20260117
  Serious: Yes (Other)
  Sender: HETERO
  Company Number: EG-HETERO-HET2025EG04904

PATIENT
  Age: 29 Year
  Sex: Female
  Weight: 72 kg

DRUGS (7)
  1. FINGOLIMOD [Suspect]
     Active Substance: FINGOLIMOD
     Indication: Multiple sclerosis
     Dosage: 0.5 MILLIGRAM, QD
     Route: 048
     Dates: start: 20250721
  2. CAL PREG [Concomitant]
     Indication: Product used for unknown indication
     Dosage: ONE TAB ONCE DAILY
     Route: 065
  3. METHYLCOBALAMIN [Concomitant]
     Active Substance: METHYLCOBALAMIN
     Indication: Product used for unknown indication
     Dosage: ONCE DAILY
     Route: 065
  4. AMANTADINE SULFATE [Concomitant]
     Active Substance: AMANTADINE SULFATE
     Indication: Product used for unknown indication
     Dosage: ONE TAB TWICE DAILY
     Route: 065
  5. GAPTIN [Concomitant]
     Indication: Product used for unknown indication
     Dosage: 100 MILLIGRAM, QD
     Route: 065
  6. MAGNESIUM [Concomitant]
     Active Substance: MAGNESIUM
     Indication: Product used for unknown indication
     Dosage: UNK WHEN NEEDED
     Route: 065
  7. DIMRA [Concomitant]
     Indication: Product used for unknown indication
     Dosage: WHEN NEEDED
     Route: 065

REACTIONS (4)
  - Hypothermia [Recovered/Resolved]
  - Hyperhidrosis [Recovered/Resolved]
  - Bradycardia [Recovered/Resolved]
  - Hypotension [Recovered/Resolved]

NARRATIVE: CASE EVENT DATE: 20250721
